FAERS Safety Report 4482465-2 (Version None)
Quarter: 2004Q4

REPORT INFORMATION
  Report Type: 
  Country: None (occurrence: None)
  Receive Date: 20041022
  Receipt Date: 20040219
  Transmission Date: 20050328
  Serious: Yes (Hospitalization)
  Sender: FDA-Public Use
  Company Number: GB-GLAXOSMITHKLINE-B0323938A

PATIENT
  Age: 71 Year

DRUGS (1)
  1. AVANDIA [Suspect]
     Dosage: 4MG PER DAY

REACTIONS (2)
  - MEDICATION ERROR [None]
  - ROAD TRAFFIC ACCIDENT [None]
